FAERS Safety Report 21731387 (Version 2)
Quarter: 2022Q4

REPORT INFORMATION
  Report Type: Spontaneous
  Country: JP (occurrence: JP)
  Receive Date: 20221215
  Receipt Date: 20221221
  Transmission Date: 20230112
  Serious: Yes (Hospitalization, Other)
  Sender: FDA-Public Use
  Company Number: JP-CHUGAI-2022049479

PATIENT
  Age: 33 Year
  Sex: Male

DRUGS (1)
  1. HEMLIBRA [Suspect]
     Active Substance: EMICIZUMAB-KXWH
     Indication: Haemophilia A without inhibitors
     Dosage: 150 MILLIGRAM, ONCE/WEEK
     Route: 058
     Dates: start: 20200206, end: 2022

REACTIONS (2)
  - Post procedural haematoma [Not Recovered/Not Resolved]
  - Urinary tract operation [Unknown]

NARRATIVE: CASE EVENT DATE: 20221125
